FAERS Safety Report 4954069-6 (Version None)
Quarter: 2006Q1

REPORT INFORMATION
  Report Type: 
  Country: None (occurrence: None)
  Receive Date: 20060321
  Receipt Date: 20060310
  Transmission Date: 20060701
  Serious: Yes (Hospitalization)
  Sender: FDA-Public Use
  Company Number: 2006-139795-NL

PATIENT
  Age: 42 Year
  Sex: Male

DRUGS (3)
  1. ROCURONIUM BROMIDE [Suspect]
     Indication: ANAESTHESIA
     Dosage: 50 MG ONCE
     Route: 042
     Dates: start: 20060226, end: 20060226
  2. THIOPENTAL SODIUM [Concomitant]
  3. FENTANYL [Concomitant]

REACTIONS (4)
  - ANAESTHETIC COMPLICATION [None]
  - ANAESTHETIC COMPLICATION PULMONARY [None]
  - BRONCHIAL OBSTRUCTION [None]
  - GENERALISED ERYTHEMA [None]
